FAERS Safety Report 12168536 (Version 1)
Quarter: 2016Q1

REPORT INFORMATION
  Report Type: Spontaneous
  Country: US (occurrence: US)
  Receive Date: 20160310
  Receipt Date: 20160310
  Transmission Date: 20160526
  Serious: No
  Sender: FDA-Public Use
  Company Number: US-ACTELION PHARMACEUTICALS US, INC.-A-US2016-131978

PATIENT
  Age: 16 Year
  Sex: Female

DRUGS (5)
  1. IBUPROFEN. [Concomitant]
     Active Substance: IBUPROFEN
     Dosage: UNK, PRN
     Route: 048
     Dates: start: 20130214
  2. CLARITIN [Concomitant]
     Active Substance: LORATADINE
     Dosage: UNK, PRN
     Route: 048
     Dates: start: 20130214
  3. ZAVESCA [Suspect]
     Active Substance: MIGLUSTAT
     Indication: LIPIDOSIS
     Dosage: 200 MG, TID
     Route: 048
     Dates: start: 20130327
  4. ONFI [Concomitant]
     Active Substance: CLOBAZAM
     Dosage: UNK, QPM
     Dates: start: 20150501
  5. OXCARBAZEPINE. [Concomitant]
     Active Substance: OXCARBAZEPINE
     Dosage: 600 MG, BID
     Route: 048
     Dates: start: 20140128

REACTIONS (1)
  - Extra dose administered [Recovered/Resolved]

NARRATIVE: CASE EVENT DATE: 20160218
